FAERS Safety Report 22221020 (Version 1)
Quarter: 2023Q2

REPORT INFORMATION
  Report Type: Report from Study
  Country: CO (occurrence: CO)
  Receive Date: 20230418
  Receipt Date: 20230418
  Transmission Date: 20230722
  Serious: Yes (Other)
  Sender: FDA-Public Use
  Company Number: CO-002147023-NVSC2022CO277666

PATIENT
  Sex: Female

DRUGS (4)
  1. BROLUCIZUMAB [Suspect]
     Active Substance: BROLUCIZUMAB
     Indication: Age-related macular degeneration
     Dosage: 120 MG, QMO (IN THE EYE)
     Route: 047
  2. BROLUCIZUMAB [Suspect]
     Active Substance: BROLUCIZUMAB
     Dosage: UNK, QMO
     Route: 047
  3. ATORVASTATIN [Suspect]
     Active Substance: ATORVASTATIN
     Indication: Blood cholesterol
     Dosage: 20 MG, Q24H
     Route: 048
  4. GLUCOSAMINE [Concomitant]
     Active Substance: GLUCOSAMINE
     Indication: Supplementation therapy
     Route: 048

REACTIONS (5)
  - Blindness [Unknown]
  - Visual impairment [Recovering/Resolving]
  - Malaise [Unknown]
  - Vision blurred [Not Recovered/Not Resolved]
  - Road traffic accident [Not Recovered/Not Resolved]
